FAERS Safety Report 23991840 (Version 1)
Quarter: 2024Q2

REPORT INFORMATION
  Report Type: Report from Study
  Country: CA (occurrence: CA)
  Receive Date: 20240619
  Receipt Date: 20240619
  Transmission Date: 20240716
  Serious: Yes (Other)
  Sender: FDA-Public Use
  Company Number: CA-ABBVIE-5802281

PATIENT
  Sex: Female

DRUGS (1)
  1. SKYRIZI [Suspect]
     Active Substance: RISANKIZUMAB-RZAA
     Indication: Crohn^s disease
     Route: 058
     Dates: start: 20230424

REACTIONS (6)
  - Hepatic cancer [Unknown]
  - Colon cancer [Unknown]
  - Pain [Unknown]
  - Ulcer [Unknown]
  - Blood iron decreased [Unknown]
  - Asthenia [Unknown]
